FAERS Safety Report 5637889-4 (Version None)
Quarter: 2008Q1

REPORT INFORMATION
  Report Type: 
  Country: None (occurrence: None)
  Receive Date: 20080221
  Receipt Date: 20080221
  Transmission Date: 20080703
  Serious: Yes (Other)
  Sender: FDA-Public Use
  Company Number: None

PATIENT
  Age: 54 Year
  Sex: Male
  Weight: 75 kg

DRUGS (1)
  1. VARENICLINE [Suspect]
     Dosage: 0.5MG BID PO
     Route: 048
     Dates: start: 20071116, end: 20080108

REACTIONS (1)
  - NIGHTMARE [None]
